FAERS Safety Report 9971955 (Version 1)
Quarter: 2014Q1

REPORT INFORMATION
  Report Type: Spontaneous
  Country: US (occurrence: None)
  Receive Date: 20140305
  Receipt Date: 20140305
  Transmission Date: 20141002
  Serious: Yes (Other)
  Sender: FDA-Public Use
  Company Number: None

PATIENT
  Age: 10 Year
  Sex: Female
  Weight: 38.56 kg

DRUGS (2)
  1. CEFDINIR [Suspect]
     Indication: PHARYNGITIS STREPTOCOCCAL
     Route: 048
     Dates: start: 20140220, end: 20140224
  2. CEPHALEXIN [Suspect]
     Indication: CELLULITIS
     Dates: start: 20140209, end: 20140216

REACTIONS (1)
  - Hypersensitivity [None]
